FAERS Safety Report 6242188-6 (Version None)
Quarter: 2009Q2

REPORT INFORMATION
  Report Type: 
  Country: None (occurrence: None)
  Receive Date: 20090622
  Receipt Date: 20090622
  Transmission Date: 20091009
  Serious: Yes (Hospitalization)
  Sender: FDA-Public Use
  Company Number: None

PATIENT
  Age: 75 Year
  Sex: Male
  Weight: 127.4 kg

DRUGS (1)
  1. CARVEDILOL [Suspect]
     Indication: ATRIAL FIBRILLATION
     Dosage: 12.5 MG EVERY DAY PO
     Route: 048
     Dates: start: 20090305, end: 20090402

REACTIONS (2)
  - HYPOTENSION [None]
  - SYNCOPE [None]
